FAERS Safety Report 23606674 (Version 1)
Quarter: 2024Q1

REPORT INFORMATION
  Report Type: Spontaneous
  Country: US (occurrence: US)
  Receive Date: 20240307
  Receipt Date: 20240307
  Transmission Date: 20240409
  Serious: Yes (Hospitalization, Other)
  Sender: FDA-Public Use
  Company Number: US-ABBVIE-5659846

PATIENT
  Age: 67 Year
  Sex: Female

DRUGS (5)
  1. LEXAPRO [Suspect]
     Active Substance: ESCITALOPRAM OXALATE
     Indication: Product used for unknown indication
     Dosage: FORM STRENGTH: 5MG
     Route: 048
  2. LETROZOLE [Suspect]
     Active Substance: LETROZOLE
     Indication: Breast cancer
     Dosage: 2.5 MG, FIRST ADMINISTRATION DATE NOV 2008
     Route: 065
  3. ASPIRIN [Suspect]
     Active Substance: ASPIRIN
     Indication: Cardiovascular event prophylaxis
     Dosage: FIRST ADMINISTRATION DATE NOV 2008
     Route: 065
  4. IBRANCE [Suspect]
     Active Substance: PALBOCICLIB
     Indication: Breast cancer female
     Dosage: 100 MG
     Route: 048
  5. IBRANCE [Suspect]
     Active Substance: PALBOCICLIB
     Indication: Breast cancer female
     Dosage: 125 MG, CYCLIC (DAYS 1-14 OF A 21 CYCLE), FIRST ADMINISTRATION DATE NOV 2008
     Route: 048

REACTIONS (34)
  - Chronic obstructive pulmonary disease [Recovered/Resolved]
  - Anxiety [Unknown]
  - Blood pressure decreased [Unknown]
  - Pulmonary embolism [Recovered/Resolved]
  - Carcinoembryonic antigen increased [Unknown]
  - Thrombocytopenia [Unknown]
  - Intention tremor [Unknown]
  - Shoulder fracture [Unknown]
  - Mastectomy [Unknown]
  - Recurrent cancer [Unknown]
  - Dry eye [Unknown]
  - Neutropenia [Unknown]
  - Breast operation [Unknown]
  - Fall [Unknown]
  - Pain in extremity [Unknown]
  - Nodule [Recovered/Resolved]
  - Fatigue [Unknown]
  - Restlessness [Unknown]
  - Thrombosis [Unknown]
  - Respiratory syncytial virus infection [Recovered/Resolved]
  - Knee arthroplasty [Unknown]
  - Breast cancer female [Unknown]
  - Leukopenia [Unknown]
  - Alopecia [Unknown]
  - Arthralgia [Unknown]
  - Gastric bypass [Unknown]
  - Hysterectomy [Unknown]
  - Pruritus [Unknown]
  - Back pain [Recovering/Resolving]
  - Fat necrosis [Unknown]
  - Depression [Unknown]
  - Arthralgia [Unknown]
  - Depression [Unknown]
  - Musculoskeletal pain [Unknown]

NARRATIVE: CASE EVENT DATE: 20180901
